FAERS Safety Report 5082152-6 (Version None)
Quarter: 2006Q3

REPORT INFORMATION
  Report Type: 
  Country: None (occurrence: None)
  Receive Date: 20060815
  Receipt Date: 20060815
  Transmission Date: 20061208
  Serious: Yes (Disabling)
  Sender: FDA-Public Use
  Company Number: None

PATIENT
  Age: 75 Year
  Sex: Male

DRUGS (12)
  1. DILANTIN [Suspect]
     Indication: DELIRIUM TREMENS
     Dosage: 1G LOADING DOSE 1X IV
     Route: 042
     Dates: start: 20060802, end: 20060802
  2. DILANTIN [Suspect]
     Indication: PROPHYLAXIS
     Dosage: 1G LOADING DOSE 1X IV
     Route: 042
     Dates: start: 20060802, end: 20060802
  3. DILANTIN [Suspect]
     Indication: DELIRIUM TREMENS
     Dosage: 100MG Q 8 HOURS IV
     Route: 042
     Dates: start: 20060802, end: 20060803
  4. DILANTIN [Suspect]
     Indication: PROPHYLAXIS
     Dosage: 100MG Q 8 HOURS IV
     Route: 042
     Dates: start: 20060802, end: 20060803
  5. FOLIC ACID [Concomitant]
  6. FAMOTIDINE [Concomitant]
  7. HUMULIN R [Concomitant]
  8. METOPROLOL TARTRATE [Concomitant]
  9. MULTI-VITAMIN [Concomitant]
  10. NICOTINE [Concomitant]
  11. POTASSIUM CHLORIDE [Concomitant]
  12. AMPICILLIN SODIUM/SULBACTAM SODIUM [Concomitant]

REACTIONS (4)
  - ECCHYMOSIS [None]
  - ERYTHEMA [None]
  - OEDEMA PERIPHERAL [None]
  - WRONG TECHNIQUE IN DRUG USAGE PROCESS [None]
